FAERS Safety Report 16971823 (Version 1)
Quarter: 2019Q4

REPORT INFORMATION
  Report Type: Spontaneous
  Country: US (occurrence: US)
  Receive Date: 20191029
  Receipt Date: 20191029
  Transmission Date: 20200122
  Serious: No
  Sender: FDA-Public Use
  Company Number: US-SA-2019SA297989

PATIENT
  Sex: Female

DRUGS (30)
  1. CODEINE [Concomitant]
     Active Substance: CODEINE
  2. COZAAR [Concomitant]
     Active Substance: LOSARTAN POTASSIUM
  3. DICYCLOMINE [DICYCLOVERINE] [Concomitant]
  4. LEVOCETIRIZINE [Concomitant]
     Active Substance: LEVOCETIRIZINE
  5. LOSARTAN POTASSIUM. [Concomitant]
     Active Substance: LOSARTAN POTASSIUM
  6. CELEBREX [Concomitant]
     Active Substance: CELECOXIB
  7. IPRATROPIUM [Concomitant]
     Active Substance: IPRATROPIUM
  8. MUPIROCIN. [Concomitant]
     Active Substance: MUPIROCIN
  9. TRAMADOL HCL [Concomitant]
     Active Substance: TRAMADOL HYDROCHLORIDE
  10. ALBUTEROL HFA [Concomitant]
     Active Substance: ALBUTEROL SULFATE
  11. AMOXICILLIN + CLAV. POTASSIUM [Concomitant]
     Active Substance: AMOXICILLIN\CLAVULANATE POTASSIUM
  12. ASPRIN [Concomitant]
     Active Substance: ASPIRIN
  13. LORAZEPAM. [Concomitant]
     Active Substance: LORAZEPAM
  14. SILVER SULFATE [Concomitant]
     Active Substance: SILVER SULFATE
  15. AZELASTINE. [Concomitant]
     Active Substance: AZELASTINE HYDROCHLORIDE
  16. CHLORTHALIDON [Concomitant]
     Active Substance: CHLORTHALIDONE
  17. LATANOPROST. [Concomitant]
     Active Substance: LATANOPROST
  18. NITROGLYCERIN. [Concomitant]
     Active Substance: NITROGLYCERIN
  19. OMEPRAZOLE. [Concomitant]
     Active Substance: OMEPRAZOLE
  20. DUPIXENT [Suspect]
     Active Substance: DUPILUMAB
     Indication: ASTHMA
     Dosage: 600 MG, 1X
     Route: 058
     Dates: start: 20191009, end: 20191009
  21. SYNTHROID [Concomitant]
     Active Substance: LEVOTHYROXINE SODIUM
  22. COMBIVENT [Concomitant]
     Active Substance: ALBUTEROL SULFATE\IPRATROPIUM BROMIDE
  23. DESONIDE. [Concomitant]
     Active Substance: DESONIDE
  24. FUROSEMIDE. [Concomitant]
     Active Substance: FUROSEMIDE
  25. LOVAZA [Concomitant]
     Active Substance: OMEGA-3-ACID ETHYL ESTERS
  26. METOPROLOL. [Concomitant]
     Active Substance: METOPROLOL
  27. GABAPENTIN. [Concomitant]
     Active Substance: GABAPENTIN
  28. PREDNISONE. [Concomitant]
     Active Substance: PREDNISONE
  29. QVAR REDIHALER [Concomitant]
     Active Substance: BECLOMETHASONE DIPROPIONATE
  30. THEOPHYLLINE [Concomitant]
     Active Substance: THEOPHYLLINE ANHYDROUS

REACTIONS (1)
  - Pigmentation disorder [Not Recovered/Not Resolved]

NARRATIVE: CASE EVENT DATE: 2019
